FAERS Safety Report 7877572-8 (Version None)
Quarter: 2011Q4

REPORT INFORMATION
  Report Type: 
  Country: None (occurrence: None)
  Receive Date: 20111031
  Receipt Date: 20111026
  Transmission Date: 20120403
  Serious: Yes (Other)
  Sender: FDA-Public Use
  Company Number: BR-PFIZER INC-2011171122

PATIENT
  Age: 65 Year
  Sex: Female
  Weight: 64 kg

DRUGS (14)
  1. ARTROLIVE [Concomitant]
     Indication: OSTEOARTHRITIS
     Dosage: 1 TABLET THREE TIMES A DAY
     Dates: start: 20110501
  2. ARTROLIVE [Concomitant]
     Indication: OSTEOPOROSIS
  3. CALCIUM [Concomitant]
     Indication: OSTEOPATHIC TREATMENT
     Dosage: THREE TIMES A DAY
     Route: 048
     Dates: start: 20110601
  4. PANTOGAR [Concomitant]
     Indication: ALOPECIA
     Dosage: UNK
  5. ARTROLIVE [Concomitant]
  6. LEXOTAN [Concomitant]
     Indication: DEPRESSION
  7. LOSARTAN [Concomitant]
     Indication: HYPERTENSION
     Dosage: 10 MG, 2X/DAY
     Dates: start: 20110501
  8. VARENICLINE TARTRATE [Suspect]
     Indication: SMOKING CESSATION THERAPY
     Dosage: 0.5 MG, 1X/DAY
     Route: 048
     Dates: start: 20110726, end: 20110101
  9. CALCIUM [Concomitant]
     Indication: OSTEOARTHRITIS
  10. HYDROCHLOROTHIAZIDE [Concomitant]
     Indication: HYPERTENSION
     Dosage: 5 MG (HALF TABLET F 10 MG), 1X/DAY
     Route: 048
     Dates: start: 20110401
  11. CALCIUM [Concomitant]
     Indication: OSTEOPOROSIS
  12. LEXOTAN [Concomitant]
     Indication: AGITATION
     Dosage: 1.5MG (HALF TABLET OF 3 MG), AT NIGHT
     Dates: start: 19910101
  13. LEXOTAN [Concomitant]
     Indication: ANXIETY
  14. SIMVASTATIN [Concomitant]
     Indication: BLOOD CHOLESTEROL INCREASED
     Dosage: 20 MG, 1X/DAY, AT NIGHT
     Route: 048
     Dates: start: 20010101

REACTIONS (4)
  - PSYCHIATRIC SYMPTOM [None]
  - BEDRIDDEN [None]
  - BLOOD PRESSURE DECREASED [None]
  - DEPRESSION [None]
